FAERS Safety Report 8845236 (Version 1)
Quarter: 2012Q4

REPORT INFORMATION
  Report Type: 
  Country: US (occurrence: US)
  Receive Date: 20121017
  Receipt Date: 20121017
  Transmission Date: 20130627
  Serious: No
  Sender: FDA-Public Use
  Company Number: US-BAYER-2012-108599

PATIENT

DRUGS (4)
  1. ALEVE CAPLET/TABLET,MIDOL EXTENDED RELIEF CAPLET [Suspect]
     Indication: ARTHRALGIA
     Dosage: 2 DF, UNK
     Dates: start: 20121009
  2. LORITAB [Concomitant]
     Indication: ARTHRALGIA
     Dosage: 1 DF, UNK
     Dates: start: 20121009
  3. HYDROCODONE [Concomitant]
     Indication: ARTHRALGIA
     Dosage: 1 DF, UNK
     Dates: start: 20121009
  4. ACTIVE-ON PAIN RELIEF GEL [Concomitant]
     Dosage: UNK
     Dates: start: 20121009

REACTIONS (1)
  - Arthralgia [None]
